FAERS Safety Report 12733601 (Version 2)
Quarter: 2016Q3

REPORT INFORMATION
  Report Type: Spontaneous
  Country: US (occurrence: US)
  Receive Date: 20160912
  Receipt Date: 20160922
  Transmission Date: 20161109
  Serious: Yes (Death, Hospitalization)
  Sender: FDA-Public Use
  Company Number: US-UNITED THERAPEUTICS-UNT-2016-014100

PATIENT
  Age: 76 Year
  Sex: Female
  Weight: 64.85 kg

DRUGS (2)
  1. REMODULIN [Suspect]
     Active Substance: TREPROSTINIL
     Indication: PULMONARY ARTERIAL HYPERTENSION
     Dosage: 0.070 ?G/KG, CONTINUING
     Route: 058
     Dates: start: 20151030
  2. REMODULIN [Suspect]
     Active Substance: TREPROSTINIL
     Dosage: 0.082 ?G/KG, CONTINUING
     Route: 058

REACTIONS (1)
  - Sepsis [Fatal]

NARRATIVE: CASE EVENT DATE: 20160902
